FAERS Safety Report 16247738 (Version 1)
Quarter: 2019Q2

REPORT INFORMATION
  Report Type: Spontaneous
  Country: US (occurrence: US)
  Receive Date: 20190428
  Receipt Date: 20190428
  Transmission Date: 20190711
  Serious: Yes (Other)
  Sender: FDA-Public Use
  Company Number: US-JNJFOC-20190417476

PATIENT
  Age: 40 Year
  Sex: Female
  Weight: 54.43 kg

DRUGS (3)
  1. ORTHO TRI CYCLEN [Suspect]
     Active Substance: ETHINYL ESTRADIOL\NORGESTIMATE
     Indication: DRUG THERAPY
     Route: 048
     Dates: start: 201903
  2. TOCOPHEROL [Concomitant]
     Active Substance: TOCOPHEROL
     Indication: NUTRITIONAL SUPPLEMENTATION
     Route: 048
     Dates: start: 2018
  3. COLLAGEN [Concomitant]
     Active Substance: COLLAGEN
     Indication: NUTRITIONAL SUPPLEMENTATION
     Route: 065
     Dates: start: 2018

REACTIONS (4)
  - Menorrhagia [Not Recovered/Not Resolved]
  - Product use in unapproved indication [Unknown]
  - Off label use [Unknown]
  - Haemorrhage [Not Recovered/Not Resolved]

NARRATIVE: CASE EVENT DATE: 201903
